FAERS Safety Report 21347962 (Version 2)
Quarter: 2023Q1

REPORT INFORMATION
  Report Type: Spontaneous
  Country: JP (occurrence: JP)
  Receive Date: 20220919
  Receipt Date: 20230307
  Transmission Date: 20230418
  Serious: Yes (Other)
  Sender: FDA-Public Use
  Company Number: JP-CHUGAI-2022035475

PATIENT
  Age: 7 Decade
  Sex: Female

DRUGS (2)
  1. TECENTRIQ [Suspect]
     Active Substance: ATEZOLIZUMAB
     Indication: Triple negative breast cancer
     Dosage: 840 MILLIGRAM, ONCE/2WEEKS
     Route: 041
  2. ABRAXANE [Concomitant]
     Active Substance: PACLITAXEL
     Indication: Triple negative breast cancer
     Dosage: UNK
     Route: 041

REACTIONS (1)
  - Blood creatine phosphokinase increased [Not Recovered/Not Resolved]
